FAERS Safety Report 12911954 (Version 1)
Quarter: 2016Q4

REPORT INFORMATION
  Report Type: Spontaneous
  Country: US (occurrence: US)
  Receive Date: 20161102
  Receipt Date: 20161102
  Transmission Date: 20170207
  Serious: Yes (Hospitalization)
  Sender: FDA-Public Use
  Company Number: None

PATIENT
  Age: 73 Year
  Sex: Male
  Weight: 99.3 kg

DRUGS (1)
  1. AMOXICILLIN/CLAVULANATE [Suspect]
     Active Substance: AMOXICILLIN\CLAVULANATE POTASSIUM
     Indication: URINARY TRACT INFECTION
     Dosage: 875/125 MG BID PO
     Route: 048
     Dates: start: 20160611, end: 20160618

REACTIONS (3)
  - Syncope [None]
  - Blood pressure orthostatic [None]
  - Diarrhoea [None]

NARRATIVE: CASE EVENT DATE: 20160615
